FAERS Safety Report 7148966-3 (Version None)
Quarter: 2010Q4

REPORT INFORMATION
  Report Type: 
  Country: None (occurrence: None)
  Receive Date: 20101209
  Receipt Date: 20101202
  Transmission Date: 20110411
  Serious: Yes (Other)
  Sender: FDA-Public Use
  Company Number: US-PFIZER INC-2010106170

PATIENT
  Sex: Female
  Weight: 69.399 kg

DRUGS (17)
  1. CHANTIX [Interacting]
     Indication: SMOKING CESSATION THERAPY
     Dosage: 0.5 MG, 1X/DAY
     Route: 048
     Dates: start: 20090101, end: 20090101
  2. CHANTIX [Interacting]
     Dosage: 0.5 MG, 1X/DAY
     Route: 048
     Dates: start: 20100816, end: 20100820
  3. CELEXA [Suspect]
     Dosage: 20 MG, 1X/DAY
     Route: 048
  4. MORPHINE [Suspect]
  5. MONTELUKAST [Concomitant]
     Dosage: UNK
  6. VALTREX [Concomitant]
     Dosage: UNK
  7. PREMARIN [Concomitant]
     Dosage: UNK
  8. LYRICA [Concomitant]
     Dosage: UNK
  9. SPIRIVA [Concomitant]
     Dosage: UNK
  10. ADVAIR [Concomitant]
     Dosage: UNK
  11. OXYMORPHONE [Concomitant]
     Dosage: UNK
  12. CLOZAPINE [Concomitant]
     Dosage: UNK
  13. BETAMETHASONE [Concomitant]
     Dosage: UNK
  14. CITALOPRAM [Concomitant]
     Indication: DEPRESSION
     Dosage: UNK
  15. HYDROCODONE [Concomitant]
     Dosage: UNK
  16. KLONOPIN [Concomitant]
  17. VESICARE [Concomitant]

REACTIONS (7)
  - CHEST PAIN [None]
  - CHRONIC OBSTRUCTIVE PULMONARY DISEASE [None]
  - DRUG INTERACTION [None]
  - HEAT STROKE [None]
  - MALAISE [None]
  - NERVOUS SYSTEM DISORDER [None]
  - SOMNOLENCE [None]
